FAERS Safety Report 6525462-5 (Version None)
Quarter: 2010Q1

REPORT INFORMATION
  Report Type: 
  Country: None (occurrence: None)
  Receive Date: 20100104
  Receipt Date: 20091223
  Transmission Date: 20100710
  Serious: Yes (Death, Hospitalization, Disabling, Other)
  Sender: FDA-Public Use
  Company Number: US-ELI_LILLY_AND_COMPANY-US200912005317

PATIENT
  Sex: Female

DRUGS (10)
  1. FORTEO [Suspect]
     Indication: ARTHRITIS
     Dosage: 20 UG, DAILY (1/D)
     Dates: start: 20080101, end: 20091101
  2. HYDROXYCHLOROQUINE SULFATE [Concomitant]
     Indication: ARTHRITIS
     Dosage: 200 MG, 2/D
  3. CYMBALTA [Concomitant]
     Dosage: 60 MG, UNK
  4. ASPIRIN [Concomitant]
     Dosage: 81 MG, 2/D
  5. NEURONTIN [Concomitant]
     Dosage: 600 MG, UNK
  6. BENADRYL [Concomitant]
     Dosage: UNK, DAILY (1/D)
  7. PRILOSEC [Concomitant]
  8. LASIX [Concomitant]
  9. POTASSIUM [Concomitant]
  10. HYDROMORPHONE HCL [Concomitant]
     Indication: PAIN

REACTIONS (8)
  - ACTIVITIES OF DAILY LIVING IMPAIRED [None]
  - CARDIAC FAILURE [None]
  - DEATH [None]
  - DEPRESSED LEVEL OF CONSCIOUSNESS [None]
  - DYSPHAGIA [None]
  - DYSPNOEA [None]
  - LUNG NEOPLASM MALIGNANT [None]
  - OFF LABEL USE [None]
